FAERS Safety Report 5926342-6 (Version None)
Quarter: 2008Q4

REPORT INFORMATION
  Report Type: 
  Country: None (occurrence: None)
  Receive Date: 20081022
  Receipt Date: 20080704
  Transmission Date: 20090506
  Serious: Yes (Hospitalization, Other)
  Sender: FDA-Public Use
  Company Number: DE-BAYER-200828696GPV

PATIENT
  Age: 68 Year
  Sex: Male
  Weight: 73 kg

DRUGS (8)
  1. ALEMTUZUMAB [Suspect]
     Indication: CHRONIC LYMPHOCYTIC LEUKAEMIA RECURRENT
     Route: 058
     Dates: start: 20070820, end: 20080116
  2. FLUDARABINE [Suspect]
     Indication: CHRONIC LYMPHOCYTIC LEUKAEMIA RECURRENT
     Route: 042
     Dates: start: 20070820, end: 20080116
  3. CYCLOPHOSPHAMIDE [Suspect]
     Indication: CHRONIC LYMPHOCYTIC LEUKAEMIA RECURRENT
     Route: 042
     Dates: start: 20070820, end: 20080116
  4. LEVOTHYROXINE SODIUM [Concomitant]
     Route: 048
     Dates: end: 20070609
  5. DICLOFENAC [Concomitant]
     Indication: PAIN
     Route: 054
     Dates: start: 20080708, end: 20080708
  6. MEROPENEM [Concomitant]
     Indication: INFECTION
     Route: 042
     Dates: start: 20080708, end: 20080710
  7. TEPILTA [Concomitant]
     Indication: DYSPEPSIA
     Route: 048
     Dates: start: 20080709, end: 20080710
  8. ZOPICLON [Concomitant]
     Route: 048
     Dates: start: 20080709, end: 20080709

REACTIONS (4)
  - ACTINOMYCOSIS [None]
  - ANOREXIA [None]
  - GENERAL PHYSICAL HEALTH DETERIORATION [None]
  - OROPHARYNGEAL PAIN [None]
